FAERS Safety Report 18165010 (Version 2)
Quarter: 2020Q3

REPORT INFORMATION
  Report Type: Spontaneous
  Country: US (occurrence: US)
  Receive Date: 20200819
  Receipt Date: 20200930
  Transmission Date: 20201103
  Serious: No
  Sender: FDA-Public Use
  Company Number: US-ASTRAZENECA-2020SF04182

PATIENT
  Sex: Male
  Weight: 87.1 kg

DRUGS (1)
  1. BYDUREON BCISE [Suspect]
     Active Substance: EXENATIDE
     Indication: TYPE 2 DIABETES MELLITUS
     Route: 058

REACTIONS (5)
  - Device leakage [Unknown]
  - Product dose omission issue [Unknown]
  - Intentional device misuse [Not Recovered/Not Resolved]
  - Incorrect dose administered by device [Unknown]
  - Glycosylated haemoglobin increased [Unknown]
